FAERS Safety Report 9992816 (Version 1)
Quarter: 2014Q1

REPORT INFORMATION
  Report Type: Spontaneous
  Country: US (occurrence: US)
  Receive Date: 20140310
  Receipt Date: 20140310
  Transmission Date: 20141002
  Serious: Yes (Other)
  Sender: FDA-Public Use
  Company Number: US-B.I. PHARMACEUTICALS,INC./RIDGEFIELD-2014-BI-09692BP

PATIENT
  Age: 44 Year
  Sex: Male
  Weight: 69 kg

DRUGS (14)
  1. SPIRIVA [Suspect]
     Indication: CHRONIC OBSTRUCTIVE PULMONARY DISEASE
     Dosage: 18 MCG
     Route: 048
  2. SPIRIVA [Suspect]
     Dosage: 18 MCG
     Route: 055
  3. GABAPENTIN [Concomitant]
     Indication: INTERVERTEBRAL DISC PROTRUSION
     Route: 065
  4. GABAPENTIN [Concomitant]
     Indication: BACK PAIN
  5. SIMVASTATIN [Concomitant]
     Indication: BLOOD CHOLESTEROL INCREASED
     Route: 065
  6. FENOFIBRATE [Concomitant]
     Indication: BLOOD CHOLESTEROL INCREASED
     Route: 065
  7. REQUIP [Concomitant]
     Indication: RESTLESS LEGS SYNDROME
     Route: 065
  8. OMEPRAZOLE [Concomitant]
     Route: 065
  9. HYDROCODONE/TYLENOL [Concomitant]
     Indication: INTERVERTEBRAL DISC PROTRUSION
     Route: 065
  10. HYDROCODONE/TYLENOL [Concomitant]
     Indication: BACK PAIN
  11. TIZANIDINE [Concomitant]
     Indication: MUSCLE SPASMS
     Route: 065
  12. TEMAZEPAM [Concomitant]
     Indication: INSOMNIA
     Route: 065
  13. FLUTICASONE [Concomitant]
     Indication: SINUS CONGESTION
     Dosage: FORMULATION: NASAL SPRAY
     Route: 065
  14. WARFARIN [Concomitant]
     Indication: PROTEIN C DEFICIENCY
     Route: 065

REACTIONS (7)
  - Deep vein thrombosis [Unknown]
  - Myocardial infarction [Unknown]
  - Myocardial infarction [Unknown]
  - Depression [Not Recovered/Not Resolved]
  - Sleep apnoea syndrome [Not Recovered/Not Resolved]
  - Abnormal loss of weight [Unknown]
  - Incorrect route of drug administration [Recovered/Resolved]
